FAERS Safety Report 6099296-2 (Version None)
Quarter: 2009Q1

REPORT INFORMATION
  Report Type: 
  Country: None (occurrence: None)
  Receive Date: 20090303
  Receipt Date: 20090226
  Transmission Date: 20090719
  Serious: Yes (Life-Threatening, Hospitalization, Other)
  Sender: FDA-Public Use
  Company Number: JP-JNJFOC-20090203145

PATIENT
  Sex: Male
  Weight: 50 kg

DRUGS (20)
  1. RISPERDAL [Suspect]
     Route: 048
  2. RISPERDAL [Suspect]
     Indication: SCHIZOPHRENIA
     Route: 048
  3. GRAMALIL [Suspect]
     Indication: DRUG USE FOR UNKNOWN INDICATION
     Route: 048
  4. LUPRAC [Concomitant]
     Route: 048
  5. ADALAT CC [Concomitant]
     Route: 048
  6. PLETAL [Concomitant]
     Route: 048
  7. ALOTEC [Concomitant]
     Route: 048
  8. SELBEX [Concomitant]
     Route: 048
  9. MAGNESIUM OXIDE [Concomitant]
     Dosage: 1 G
     Route: 048
  10. BUP-4 [Concomitant]
     Route: 048
  11. SIMVASTATIN [Concomitant]
     Route: 048
  12. DEPAS [Concomitant]
     Dosage: P.R.N
     Route: 048
  13. DEPAS [Concomitant]
     Route: 048
  14. MOHRUS TAPEL [Concomitant]
     Dosage: 6 BAGS
     Route: 061
  15. WARFARIN [Concomitant]
     Route: 048
  16. LAXOBERON [Concomitant]
     Route: 065
  17. AMARYL [Concomitant]
     Route: 048
  18. CYANOCOBALAMIN [Concomitant]
     Dosage: 500 MICROGRAM
     Route: 048
  19. MYSLEE [Concomitant]
     Route: 048
  20. NITROPEN [Concomitant]
     Dosage: P.R.N
     Route: 065

REACTIONS (3)
  - ATRIAL FIBRILLATION [None]
  - ELECTROCARDIOGRAM QT PROLONGED [None]
  - VENTRICULAR FIBRILLATION [None]
